FAERS Safety Report 9365640 (Version 1)
Quarter: 2013Q2

REPORT INFORMATION
  Report Type: Spontaneous
  Country: FR (occurrence: FR)
  Receive Date: 20130625
  Receipt Date: 20130625
  Transmission Date: 20140414
  Serious: Yes (Hospitalization)
  Sender: FDA-Public Use
  Company Number: FR-ROCHE-1241070

PATIENT
  Age: 79 Year
  Sex: Male

DRUGS (5)
  1. ROCEPHINE [Suspect]
     Indication: DERMO-HYPODERMITIS
     Route: 065
     Dates: start: 20130507, end: 20130521
  2. ZYVOXID [Suspect]
     Indication: DERMO-HYPODERMITIS
     Route: 048
     Dates: start: 20130507, end: 20130521
  3. TOPALGIC LP [Concomitant]
     Route: 065
  4. CRESTOR [Concomitant]
     Route: 065
  5. COAPROVEL [Concomitant]
     Dosage: 150/12.5 X 2/DAY.
     Route: 065

REACTIONS (5)
  - Erythema [Recovered/Resolved]
  - Thrombocytopenia [Unknown]
  - Leukopenia [Unknown]
  - Renal failure acute [Unknown]
  - Oedema peripheral [Not Recovered/Not Resolved]
